FAERS Safety Report 9751247 (Version 1)
Quarter: 2013Q4

REPORT INFORMATION
  Report Type: Spontaneous
  Country: US (occurrence: US)
  Receive Date: 20131212
  Receipt Date: 20131212
  Transmission Date: 20140711
  Serious: No
  Sender: FDA-Public Use
  Company Number: US-BIOGENIDEC-2013BI091879

PATIENT
  Age: 65 Year
  Sex: Female

DRUGS (6)
  1. TECFIDERA [Suspect]
     Indication: MULTIPLE SCLEROSIS
     Route: 048
     Dates: start: 201306
  2. BACLOFEN [Concomitant]
  3. BIOTIN [Concomitant]
  4. CIPRO [Concomitant]
  5. FLONASE [Concomitant]
  6. NAPROXEN [Concomitant]

REACTIONS (1)
  - Pain in extremity [Unknown]
